FAERS Safety Report 8201319-9 (Version None)
Quarter: 2012Q1

REPORT INFORMATION
  Report Type: 
  Country: None (occurrence: None)
  Receive Date: 20120312
  Receipt Date: 20120307
  Transmission Date: 20120608
  Serious: Yes (Other)
  Sender: FDA-Public Use
  Company Number: US-VERTEX PHARMACEUTICALS INC.-AE-2012-002361

PATIENT
  Sex: Female
  Weight: 65.83 kg

DRUGS (6)
  1. PEGASYS [Concomitant]
     Indication: HEPATITIS C
     Route: 058
     Dates: start: 20120116
  2. RIBAVIRIN [Concomitant]
     Indication: HEPATITIS C
     Route: 048
     Dates: start: 20120116, end: 20120212
  3. INCIVEK [Suspect]
     Indication: HEPATITIS C
     Route: 048
     Dates: start: 20120116
  4. ADVAIR DISKUS 100/50 [Concomitant]
  5. ZOLOFT [Concomitant]
  6. RIBAVIRIN [Concomitant]
     Route: 048
     Dates: start: 20120212

REACTIONS (5)
  - HAEMOGLOBIN DECREASED [None]
  - WHITE BLOOD CELL COUNT DECREASED [None]
  - DIZZINESS [None]
  - DYSPNOEA [None]
  - ASTHENIA [None]
